FAERS Safety Report 19685162 (Version 4)
Quarter: 2021Q4

REPORT INFORMATION
  Report Type: Report from Study
  Country: MY (occurrence: MY)
  Receive Date: 20210811
  Receipt Date: 20211228
  Transmission Date: 20220303
  Serious: Yes (Other)
  Sender: FDA-Public Use
  Company Number: NVSC2021MY071048

PATIENT
  Age: 74 Year
  Sex: Male

DRUGS (1)
  1. ENTRESTO [Suspect]
     Active Substance: SACUBITRIL\VALSARTAN
     Indication: Cardiac failure
     Dosage: 200 MG, UNKNOWN
     Route: 048

REACTIONS (8)
  - Syncope [Unknown]
  - General physical health deterioration [Unknown]
  - Abdominal distension [Unknown]
  - Joint swelling [Unknown]
  - Lethargy [Unknown]
  - Vomiting [Unknown]
  - Hypertension [Unknown]
  - Fatigue [Unknown]

NARRATIVE: CASE EVENT DATE: 20210804
